FAERS Safety Report 16702754 (Version 1)
Quarter: 2019Q3

REPORT INFORMATION
  Report Type: Spontaneous
  Country: US (occurrence: US)
  Receive Date: 20190813
  Receipt Date: 20190813
  Transmission Date: 20191004
  Serious: Yes (Hospitalization)
  Sender: FDA-Public Use
  Company Number: None

PATIENT
  Age: 36 Year
  Sex: Female
  Weight: 72.57 kg

DRUGS (1)
  1. PARAGARD T 380A [Suspect]
     Active Substance: COPPER

REACTIONS (13)
  - Diarrhoea [None]
  - Panic attack [None]
  - Cardiac disorder [None]
  - Migraine [None]
  - Vomiting [None]
  - Metal poisoning [None]
  - Fibromyalgia [None]
  - Chest pain [None]
  - Visual impairment [None]
  - Anxiety [None]
  - Dyspnoea [None]
  - Palpitations [None]
  - Weight increased [None]

NARRATIVE: CASE EVENT DATE: 20181110
